FAERS Safety Report 7035711-5 (Version None)
Quarter: 2010Q4

REPORT INFORMATION
  Report Type: 
  Country: None (occurrence: None)
  Receive Date: 20101008
  Receipt Date: 20101006
  Transmission Date: 20110411
  Serious: Yes (Other)
  Sender: FDA-Public Use
  Company Number: US-BRISTOL-MYERS SQUIBB COMPANY-15320690

PATIENT
  Age: 48 Year
  Sex: Female

DRUGS (2)
  1. ABILIFY [Suspect]
     Indication: BIPOLAR DISORDER
     Dosage: OVER A YEAR AGO
     Route: 048
  2. ABILIFY [Suspect]
     Indication: BIPOLAR DISORDER
     Route: 060

REACTIONS (1)
  - GASTRIC BYPASS [None]
